FAERS Safety Report 9006649 (Version 2)
Quarter: 2015Q3

REPORT INFORMATION
  Report Type: Spontaneous
  Country: US (occurrence: US)
  Receive Date: 20120517
  Receipt Date: 20150921
  Transmission Date: 20151125
  Serious: Yes (Other)
  Sender: FDA-Public Use
  Company Number: PHEH2009US17446

PATIENT
  Sex: Male

DRUGS (2)
  1. SANDOSTATIN LAR DEPOT [Suspect]
     Active Substance: OCTREOTIDE ACETATE
     Indication: NEUROENDOCRINE CARCINOMA METASTATIC
     Dosage: 20 MG, QMO
     Route: 065
     Dates: start: 2010
  2. SANDOSTATIN [Suspect]
     Active Substance: OCTREOTIDE ACETATE
     Indication: NEUROENDOCRINE CARCINOMA METASTATIC
     Dosage: 150 UG, BID
     Route: 065
     Dates: start: 2008

REACTIONS (7)
  - Injection site mass [Unknown]
  - Nausea [Unknown]
  - Diabetes mellitus [Unknown]
  - Hyperhidrosis [Unknown]
  - Anxiety [Unknown]
  - Cholelithiasis [Unknown]
  - Blood pressure abnormal [Unknown]
